FAERS Safety Report 8595775 (Version 2)
Quarter: 2013Q3

REPORT INFORMATION
  Report Type: Spontaneous
  Country: US (occurrence: US)
  Receive Date: 20120605
  Receipt Date: 20130702
  Transmission Date: 20140515
  Serious: Yes (Hospitalization, Disabling)
  Sender: FDA-Public Use
  Company Number: US-ASTRAZENECA-2012SE35477

PATIENT
  Age: 51 Year
  Sex: Male

DRUGS (9)
  1. NEXIUM [Suspect]
     Indication: GASTRIC DISORDER
     Route: 048
     Dates: start: 20040727
  2. NEXIUM [Suspect]
     Indication: GASTRIC DISORDER
     Route: 048
     Dates: start: 20040727
  3. METFORMIN HCL [Concomitant]
     Route: 048
  4. ASPIRIN [Concomitant]
     Route: 048
  5. ESCITALOPRAM [Concomitant]
     Route: 048
  6. TRILIPIX [Concomitant]
     Route: 048
  7. VITAMIN D 2 [Concomitant]
     Route: 048
  8. VITAMIN D 2 [Concomitant]
     Dosage: 1.5 THREE TIMES A DAY
     Route: 048
  9. FISH OIL [Concomitant]

REACTIONS (6)
  - Pancreatitis [Unknown]
  - Ankle fracture [Unknown]
  - Musculoskeletal discomfort [Unknown]
  - Osteoporosis [Unknown]
  - Diabetes mellitus [Unknown]
  - Vitamin D deficiency [Unknown]
